FAERS Safety Report 5103567-3 (Version None)
Quarter: 2006Q3

REPORT INFORMATION
  Report Type: 
  Country: None (occurrence: None)
  Receive Date: 20060913
  Receipt Date: 20060901
  Transmission Date: 20061208
  Serious: Yes (Hospitalization)
  Sender: FDA-Public Use
  Company Number: BR-ROCHE-462145

PATIENT
  Age: 59 Year
  Sex: Female

DRUGS (2)
  1. BONIVA [Suspect]
     Indication: OSTEOPOROSIS
     Route: 048
     Dates: start: 20060815, end: 20060815
  2. OMEPRAZOLE [Concomitant]
     Route: 048

REACTIONS (5)
  - BONE PAIN [None]
  - CHEST PAIN [None]
  - DIARRHOEA [None]
  - DRY MOUTH [None]
  - VOMITING [None]
